FAERS Safety Report 9655217 (Version 2)
Quarter: 2013Q4

REPORT INFORMATION
  Report Type: Spontaneous
  Country: US (occurrence: US)
  Receive Date: 20131029
  Receipt Date: 20131029
  Transmission Date: 20140711
  Serious: Yes (Other)
  Sender: FDA-Public Use
  Company Number: US-NAPPMUNDI-USA-2012-0086221

PATIENT
  Age: 67 Year
  Sex: Male

DRUGS (5)
  1. OXYCONTIN (NDA 22-272) [Suspect]
     Indication: PAIN
     Dosage: 20 MG, QID
     Route: 048
     Dates: start: 20120405, end: 20120426
  2. OXYCONTIN (NDA 22-272) [Suspect]
     Indication: ANKLE FRACTURE
  3. MORPHINE SULFATE (SIMILAR TO NDA 19-516) [Suspect]
     Indication: PAIN
     Dosage: 30 MG, UNK
     Route: 048
     Dates: start: 201204, end: 20120426
  4. MORPHINE SULFATE (SIMILAR TO NDA 19-516) [Suspect]
     Indication: ANKLE FRACTURE
     Route: 042
  5. MORPHINE [Suspect]
     Indication: ANKLE FRACTURE
     Dosage: UNK
     Route: 042
     Dates: start: 201204, end: 201204

REACTIONS (21)
  - Hallucination [Recovered/Resolved]
  - Drug withdrawal syndrome [Recovering/Resolving]
  - Blood pressure abnormal [Recovering/Resolving]
  - Dysstasia [Recovering/Resolving]
  - Myalgia [Recovering/Resolving]
  - Piloerection [Recovering/Resolving]
  - Rhinorrhoea [Recovering/Resolving]
  - Palpitations [Recovering/Resolving]
  - Agitation [Not Recovered/Not Resolved]
  - Feeling jittery [Not Recovered/Not Resolved]
  - Insomnia [Recovering/Resolving]
  - Restlessness [Recovering/Resolving]
  - Hyperhidrosis [Recovering/Resolving]
  - Tremor [Recovering/Resolving]
  - Chills [Recovering/Resolving]
  - Irritability [Recovering/Resolving]
  - Anxiety [Recovering/Resolving]
  - Nausea [Recovering/Resolving]
  - Asthenia [Recovering/Resolving]
  - Headache [Unknown]
  - Drug hypersensitivity [Unknown]
